FAERS Safety Report 8456538-3 (Version None)
Quarter: 2012Q2

REPORT INFORMATION
  Report Type: 
  Country: None (occurrence: None)
  Receive Date: 20120323
  Receipt Date: 20111207
  Transmission Date: 20120825
  Serious: Yes (Other)
  Sender: FDA-Public Use
  Company Number: 163-21880-11092187

PATIENT
  Age: 59 Year
  Sex: Female
  Weight: 86.637 kg

DRUGS (10)
  1. CARAFATE [Concomitant]
  2. ATIVAN [Concomitant]
  3. COUMADIN [Concomitant]
  4. OXYCODONE (OXYCODONE)(UNKNOWN) [Concomitant]
  5. REVLIMID [Suspect]
     Indication: MULTIPLE MYELOMA
     Dosage: 10 MG, 1 IN 1 D, PO, 5 MG, 1 IN 2 D, PO , 5 MG, 1 IN 1 D, PO
     Route: 048
     Dates: start: 20110718, end: 20110908
  6. REVLIMID [Suspect]
     Indication: MULTIPLE MYELOMA
     Dosage: 10 MG, 1 IN 1 D, PO, 5 MG, 1 IN 2 D, PO , 5 MG, 1 IN 1 D, PO
     Route: 048
     Dates: start: 20110101
  7. IMODIUM (LOPERAMIDE HYDROCHLORIDE)  (UNKNOWN) [Concomitant]
  8. SYNTHROID [Concomitant]
  9. ZOMETA [Concomitant]
  10. REGLAN (METOCLOPRAMIDE)(UNKNOWN) [Concomitant]

REACTIONS (3)
  - NEUTROPENIA [None]
  - PLATELET COUNT DECREASED [None]
  - WHITE BLOOD CELL COUNT DECREASED [None]
